FAERS Safety Report 18648513 (Version 2)
Quarter: 2021Q1

REPORT INFORMATION
  Report Type: Spontaneous
  Country: US (occurrence: US)
  Receive Date: 20201222
  Receipt Date: 20210113
  Transmission Date: 20210419
  Serious: Yes (Other)
  Sender: FDA-Public Use
  Company Number: US-PFIZER INC-2020504856

PATIENT
  Age: 42 Year
  Sex: Female

DRUGS (1)
  1. IBRANCE [Suspect]
     Active Substance: PALBOCICLIB
     Indication: BREAST CANCER FEMALE
     Dosage: 125 MG, CYCLIC;(TAKE 1 TABLET BY MOUTH ONCE DAILY. 3 WEEKS ON AND ONE WEEK OFF.)
     Route: 048
     Dates: start: 202010

REACTIONS (5)
  - Menstrual disorder [Unknown]
  - Stress [Unknown]
  - Haematochezia [Unknown]
  - Alopecia [Unknown]
  - Epistaxis [Unknown]

NARRATIVE: CASE EVENT DATE: 20201112
